FAERS Safety Report 10285415 (Version 2)
Quarter: 2014Q3

REPORT INFORMATION
  Report Type: Report from Study
  Country: US (occurrence: US)
  Receive Date: 20140708
  Receipt Date: 20140722
  Transmission Date: 20150326
  Serious: Yes (Hospitalization)
  Sender: FDA-Public Use
  Company Number: US-BRISTOL-MYERS SQUIBB COMPANY-21135231

PATIENT
  Age: 55 Year
  Sex: Female
  Weight: 89.5 kg

DRUGS (23)
  1. ALCLOMETASONE DIPROPIONATE. [Concomitant]
     Active Substance: ALCLOMETASONE DIPROPIONATE
     Dates: start: 20140228
  2. HYDROCORTISONE. [Concomitant]
     Active Substance: HYDROCORTISONE
     Dates: start: 20140228
  3. VITAMIN B [Concomitant]
     Active Substance: VITAMIN B
     Indication: PREMEDICATION
     Dates: start: 20140327
  4. MYCOPHENOLATE MOFETIL. [Concomitant]
     Active Substance: MYCOPHENOLATE MOFETIL
     Dates: start: 20140521
  5. NIVOLUMAB [Suspect]
     Active Substance: NIVOLUMAB
     Indication: RENAL CELL CARCINOMA
     Route: 042
     Dates: start: 20140214, end: 20140508
  6. CLOBETASOL [Concomitant]
     Active Substance: CLOBETASOL
     Dates: start: 20140228
  7. IMODIUM [Concomitant]
     Active Substance: LOPERAMIDE HYDROCHLORIDE
     Dates: start: 20140327
  8. METFORMIN [Concomitant]
     Active Substance: METFORMIN HYDROCHLORIDE
     Indication: PREMEDICATION
     Dates: start: 199709
  9. LORAZEPAM. [Concomitant]
     Active Substance: LORAZEPAM
     Indication: PREMEDICATION
     Dates: start: 20140121
  10. ZYRTEC [Concomitant]
     Active Substance: CETIRIZINE HYDROCHLORIDE
     Dates: start: 20140228
  11. LANTUS [Concomitant]
     Active Substance: INSULIN GLARGINE
     Indication: PREMEDICATION
     Dates: start: 20140428
  12. IPILIMUMAB [Suspect]
     Active Substance: IPILIMUMAB
     Indication: RENAL CELL CARCINOMA
     Route: 042
     Dates: start: 20140214, end: 20140508
  13. CRANBERRY. [Concomitant]
     Active Substance: CRANBERRY
     Indication: PREMEDICATION
     Dates: start: 20131113
  14. VITAMIN C [Concomitant]
     Active Substance: ASCORBIC ACID
     Indication: PREMEDICATION
     Dates: start: 20131203
  15. VALACYCLOVIR [Concomitant]
     Active Substance: VALACYCLOVIR HYDROCHLORIDE
     Indication: PREMEDICATION
     Dates: start: 20140121
  16. NOVOLOG [Concomitant]
     Active Substance: INSULIN ASPART
     Indication: PREMEDICATION
     Dates: start: 20140408
  17. PREDNISONE. [Concomitant]
     Active Substance: PREDNISONE
     Dosage: 04JUN-12JUN14:60MG?12JUN14-ONG:40MG?12JUN14-ONG:60MG
     Dates: start: 20140604
  18. VITAMIN D [Concomitant]
     Active Substance: CHOLECALCIFEROL
     Indication: PREMEDICATION
     Dates: start: 20131113
  19. VALACYCLOVIR [Concomitant]
     Active Substance: VALACYCLOVIR HYDROCHLORIDE
     Indication: PREMEDICATION
     Dates: start: 20140121
  20. PROTONIX [Concomitant]
     Active Substance: PANTOPRAZOLE SODIUM
     Indication: PREMEDICATION
     Dates: start: 20140408
  21. IRON [Concomitant]
     Active Substance: IRON
     Indication: PREMEDICATION
     Dates: start: 20131203
  22. BENADRYL [Concomitant]
     Active Substance: DIPHENHYDRAMINE HYDROCHLORIDE
     Dates: start: 20140228
  23. COLACE [Concomitant]
     Active Substance: DOCUSATE SODIUM
     Indication: PREMEDICATION
     Dates: start: 20130314

REACTIONS (2)
  - Hypotension [Recovered/Resolved]
  - Pyrexia [Recovered/Resolved]

NARRATIVE: CASE EVENT DATE: 20140624
